FAERS Safety Report 8612253-4 (Version None)
Quarter: 2012Q3

REPORT INFORMATION
  Report Type: 
  Country: None (occurrence: None)
  Receive Date: 20120822
  Receipt Date: 20120814
  Transmission Date: 20120928
  Serious: Yes (Hospitalization, Other)
  Sender: FDA-Public Use
  Company Number: US-ACTELION-A-US2012-63246

PATIENT
  Age: 63 Year
  Sex: Female

DRUGS (1)
  1. TRACLEER [Suspect]
     Indication: PULMONARY ARTERIAL HYPERTENSION
     Dosage: UNK
     Route: 048
     Dates: start: 20111004

REACTIONS (9)
  - LUNG INFECTION [None]
  - SYSTEMIC LUPUS ERYTHEMATOSUS [None]
  - WHEEZING [None]
  - DYSPNOEA [None]
  - PRODUCTIVE COUGH [None]
  - MULTIPLE SCLEROSIS [None]
  - INSOMNIA [None]
  - MALAISE [None]
  - CONVULSION [None]
